FAERS Safety Report 15295581 (Version 1)
Quarter: 2018Q3

REPORT INFORMATION
  Report Type: Spontaneous
  Country: SE (occurrence: SE)
  Receive Date: 20180820
  Receipt Date: 20180820
  Transmission Date: 20181010
  Serious: Yes (Other)
  Sender: FDA-Public Use
  Company Number: PHHY2018SE073688

PATIENT
  Age: 52 Year
  Sex: Female
  Weight: 73 kg

DRUGS (2)
  1. LOSARTAN TEVA [Suspect]
     Active Substance: LOSARTAN
     Indication: HYPERTENSION
     Dosage: 100 MG, UNK
     Route: 065
     Dates: start: 20170703, end: 20171019
  2. LOSARTAN. [Suspect]
     Active Substance: LOSARTAN
     Indication: HYPERTENSION
     Dosage: 50 MG, UNK
     Route: 065
     Dates: end: 20170702

REACTIONS (7)
  - Dyspnoea [Recovered/Resolved]
  - Fatigue [Recovered/Resolved]
  - Alopecia [Recovered/Resolved]
  - Palpitations [Recovered/Resolved]
  - Muscle tightness [Recovered/Resolved]
  - Depression [Recovered/Resolved]
  - Headache [Recovered/Resolved]

NARRATIVE: CASE EVENT DATE: 20160501
